FAERS Safety Report 8648463 (Version 1)
Quarter: 2012Q4

REPORT INFORMATION
  Report Type: 
  Country: US (occurrence: US)
  Receive Date: 20120828
  Receipt Date: 20120828
  Transmission Date: 20130627
  Serious: Yes (Other)
  Sender: FDA-Public Use
  Company Number: US-B.I. PHARMACEUTICALS,INC./RIDGEFIELD-2012-BP-14646BP

PATIENT
  Age: 59 Year
  Sex: Male

DRUGS (7)
  1. SPIRIVA [Suspect]
     Indication: ASBESTOSIS
     Dosage: 18 mcg
     Route: 055
  2. TAMSULOSIN [Concomitant]
     Indication: BENIGN PROSTATIC HYPERPLASIA
     Dosage: 0.4 mg
     Route: 048
  3. MAGNESIUM OXIDE [Concomitant]
     Dosage: 400 mg
     Route: 048
  4. FINASTERIDE [Concomitant]
     Indication: HYPERTENSION
     Dosage: 5 mg
     Route: 048
  5. BENZONATATE [Concomitant]
     Indication: ASBESTOSIS
     Dosage: 100 mg
     Route: 048
  6. BENICAR [Concomitant]
     Indication: HYPERTENSION
     Dosage: 40 mg
     Route: 048
  7. NASONEX [Concomitant]
     Indication: ASBESTOSIS
     Route: 045

REACTIONS (5)
  - Bladder mass [Recovered/Resolved]
  - Nephrolithiasis [Recovered/Resolved]
  - Penile haemorrhage [Not Recovered/Not Resolved]
  - Dysuria [Not Recovered/Not Resolved]
  - Urinary tract infection [Recovered/Resolved]
